FAERS Safety Report 9027874 (Version 2)
Quarter: 2013Q4

REPORT INFORMATION
  Report Type: Spontaneous
  Country: CA (occurrence: CA)
  Receive Date: 20130124
  Receipt Date: 20131008
  Transmission Date: 20140711
  Serious: Yes (Other)
  Sender: FDA-Public Use
  Company Number: CA-AMGEN-CANSP2013003113

PATIENT
  Age: 63 Year
  Sex: Female
  Weight: 86.36 kg

DRUGS (2)
  1. PROLIA [Suspect]
     Indication: OSTEOPOROSIS POSTMENOPAUSAL
     Dosage: 60 MG, UNK
     Route: 065
     Dates: start: 20120224
  2. VITAMINS                           /00067501/ [Concomitant]

REACTIONS (2)
  - Foot operation [Unknown]
  - Retinal disorder [Recovering/Resolving]
